FAERS Safety Report 9569300 (Version 2)
Quarter: 2013Q3

REPORT INFORMATION
  Report Type: Spontaneous
  Country: US (occurrence: US)
  Receive Date: 20130930
  Receipt Date: 20130930
  Transmission Date: 20140515
  Serious: No
  Sender: FDA-Public Use
  Company Number: US-AMGEN-USASP2013052383

PATIENT
  Age: 48 Year
  Sex: Female
  Weight: 97.51 kg

DRUGS (11)
  1. ENBREL [Suspect]
     Indication: PUSTULAR PSORIASIS
     Dosage: 50 MG, QWK
     Route: 058
     Dates: start: 20120724
  2. ENBREL [Suspect]
     Indication: PSORIATIC ARTHROPATHY
  3. METHOTREXATE [Suspect]
     Indication: PRODUCT USED FOR UNKNOWN INDICATION
     Dosage: 0.45ML PER DAY
     Route: 065
  4. KLONOPIN [Concomitant]
     Dosage: 0.5 MG, UNK
  5. DILAUDID [Concomitant]
     Dosage: 2 MG, UNK
  6. SEROQUEL [Concomitant]
     Dosage: 100 MG, UNK
  7. CALCIUM + VIT D [Concomitant]
     Dosage: 500 UNK, UNK
  8. EXALGO [Concomitant]
     Dosage: 12 MG, UNK
  9. FOLIC ACID [Concomitant]
     Dosage: UNK
  10. MELATONIN [Concomitant]
     Dosage: 3 MG, UNK
  11. METHOTREXATE                       /00113802/ [Concomitant]
     Dosage: 25 MG/ML, UNK

REACTIONS (8)
  - Nausea [Not Recovered/Not Resolved]
  - Fatigue [Not Recovered/Not Resolved]
  - Decreased appetite [Not Recovered/Not Resolved]
  - Vomiting [Not Recovered/Not Resolved]
  - Arthralgia [Not Recovered/Not Resolved]
  - Rash pustular [Not Recovered/Not Resolved]
  - Purulent discharge [Not Recovered/Not Resolved]
  - Skin exfoliation [Not Recovered/Not Resolved]
